FAERS Safety Report 11434024 (Version 2)
Quarter: 2015Q4

REPORT INFORMATION
  Report Type: Report from Study
  Country: JP (occurrence: JP)
  Receive Date: 20150831
  Receipt Date: 20151020
  Transmission Date: 20160304
  Serious: Yes (Hospitalization)
  Sender: FDA-Public Use
  Company Number: JP-ROCHE-1625711

PATIENT
  Age: 6 Year
  Sex: Female
  Weight: 15.5 kg

DRUGS (12)
  1. RITUXIMAB [Suspect]
     Active Substance: RITUXIMAB
     Indication: NEPHROTIC SYNDROME
     Dosage: DOSAGE IS UNCERTAIN.
     Route: 041
     Dates: start: 20121001, end: 20121001
  2. PREDONINE [Concomitant]
     Active Substance: PREDNISOLONE\PREDNISOLONE ACETATE\PREDNISOLONE SODIUM SUCCINATE
     Dosage: IT IS A MAXIMAL DOSE FOR THE PERIOD: MINIMUM AMOUNT DURING 25MG/DAY: 5MG/DAY.
     Route: 048
     Dates: start: 2015
  3. NEORAL [Concomitant]
     Active Substance: CYCLOSPORINE
     Indication: NEPHROTIC SYNDROME
     Route: 048
     Dates: start: 20150219, end: 20150326
  4. CALONAL [Concomitant]
     Active Substance: ACETAMINOPHEN
     Dosage: SINGLE
     Route: 048
     Dates: start: 20150226, end: 20150226
  5. POLARAMINE [Concomitant]
     Active Substance: DEXCHLORPHENIRAMINE MALEATE
     Dosage: SINGLE
     Route: 048
     Dates: start: 20150226, end: 20150226
  6. RITUXIMAB [Suspect]
     Active Substance: RITUXIMAB
     Indication: NEPHROTIC SYNDROME
     Route: 041
     Dates: start: 20150226, end: 20150226
  7. BREDININ [Concomitant]
     Active Substance: MIZORIBINE
     Route: 048
     Dates: end: 20150209
  8. PREDNISOLONE SODIUM SUCCINATE [Concomitant]
     Active Substance: PREDNISOLONE SODIUM SUCCINATE
     Dosage: SINGLE
     Route: 042
     Dates: start: 20150226, end: 20150226
  9. PREDONINE [Concomitant]
     Active Substance: PREDNISOLONE\PREDNISOLONE ACETATE\PREDNISOLONE SODIUM SUCCINATE
     Indication: NEPHROTIC SYNDROME
     Route: 048
     Dates: start: 20150202, end: 2015
  10. BAKTAR [Concomitant]
     Active Substance: SULFAMETHOXAZOLE\TRIMETHOPRIM
     Indication: INFECTION PROPHYLAXIS
     Route: 048
     Dates: start: 20150226
  11. MYCOPHENOLATE MOFETIL. [Suspect]
     Active Substance: MYCOPHENOLATE MOFETIL
     Indication: NEPHROTIC SYNDROME
     Route: 048
     Dates: start: 20150312, end: 20150803
  12. RITUXIMAB [Suspect]
     Active Substance: RITUXIMAB
     Route: 041
     Dates: start: 20150226, end: 20150226

REACTIONS (3)
  - Pyrexia [Recovered/Resolved]
  - Neutropenia [Recovered/Resolved]
  - Off label use [Unknown]

NARRATIVE: CASE EVENT DATE: 20150802
